FAERS Safety Report 8319798-5 (Version None)
Quarter: 2012Q2

REPORT INFORMATION
  Report Type: 
  Country: None (occurrence: None)
  Receive Date: 20120427
  Receipt Date: 20120423
  Transmission Date: 20120825
  Serious: No
  Sender: FDA-Public Use
  Company Number: US-B.I. PHARMACEUTICALS,INC./RIDGEFIELD-2012-BP-09247BP

PATIENT
  Sex: Male

DRUGS (12)
  1. NEURONTIN [Concomitant]
     Indication: NEUROPATHY PERIPHERAL
     Dosage: (CAPSULE) STRENGTH: 300 MG; DAILY DOSE: 900 MG
     Route: 048
     Dates: start: 20110901
  2. OXYCODONE AND ACETAMINOPHEN [Concomitant]
     Indication: NECK PAIN
     Route: 048
     Dates: start: 20080901
  3. METOPROLOL TARTRATE [Concomitant]
     Indication: HEART RATE IRREGULAR
     Dosage: 50 MG
     Route: 048
     Dates: start: 20110301
  4. SIMVASTATIN [Concomitant]
     Indication: BLOOD CHOLESTEROL INCREASED
     Dosage: 40 MG
     Route: 048
     Dates: start: 20080101
  5. AMBIEN [Concomitant]
     Indication: INSOMNIA
     Dosage: 10 MG
     Route: 048
     Dates: start: 20080101
  6. AGGRENOX [Suspect]
     Indication: CEREBROVASCULAR ACCIDENT PROPHYLAXIS
     Route: 048
     Dates: start: 20100801
  7. LISINOPRIL [Concomitant]
     Indication: HYPERTENSION
     Dosage: 20 MG
     Route: 048
     Dates: start: 20050101
  8. NEURONTIN [Concomitant]
     Indication: HERPES ZOSTER
  9. SOMA [Concomitant]
     Indication: NECK PAIN
     Dosage: (TABLET) STRENGTH: 350 MG; DAILY DOSE: 1050 MG
     Route: 048
     Dates: start: 20080901
  10. TRAZODONE HCL [Concomitant]
     Indication: INSOMNIA
     Dosage: 50 MG
     Route: 048
     Dates: start: 20100101
  11. AMLODIPINE [Concomitant]
     Indication: HYPERTENSION
     Dosage: 10 MG
     Route: 048
     Dates: start: 20100101
  12. TRAZODONE HCL [Concomitant]
     Dosage: 150 MG
     Route: 048
     Dates: start: 20100101

REACTIONS (2)
  - CATARACT [None]
  - CONTUSION [None]
